FAERS Safety Report 13896037 (Version 1)
Quarter: 2017Q3

REPORT INFORMATION
  Report Type: Spontaneous
  Country: US (occurrence: US)
  Receive Date: 20170823
  Receipt Date: 20170823
  Transmission Date: 20171127
  Serious: No
  Sender: FDA-Public Use
  Company Number: US-TEVA-729450ACC

PATIENT
  Sex: Male

DRUGS (2)
  1. WATSON METOPROLOL SUCCINATE ER [Suspect]
     Active Substance: METOPROLOL SUCCINATE
     Dates: start: 2016, end: 2016
  2. WATSON METOPROLOL SUCCINATE ER [Suspect]
     Active Substance: METOPROLOL SUCCINATE
     Dates: start: 2016

REACTIONS (2)
  - Blood pressure inadequately controlled [None]
  - Drug ineffective [Unknown]

NARRATIVE: CASE EVENT DATE: 2016
